FAERS Safety Report 8789018 (Version 1)
Quarter: 2012Q4

REPORT INFORMATION
  Report Type: 
  Country: US (occurrence: US)
  Receive Date: 20120916
  Receipt Date: 20120916
  Transmission Date: 20130627
  Serious: No
  Sender: FDA-Public Use
  Company Number: US-009507513-1208USA010195

PATIENT

DRUGS (2)
  1. EMEND [Suspect]
     Indication: PROPHYLAXIS OF NAUSEA AND VOMITING
     Dosage: 125 mg, on day 1
     Route: 048
  2. EMEND [Suspect]
     Dosage: 80 mg, on  day 2 and day 3
     Route: 048

REACTIONS (1)
  - Headache [Recovered/Resolved]
